FAERS Safety Report 5424648-0 (Version None)
Quarter: 2007Q3

REPORT INFORMATION
  Report Type: 
  Country: None (occurrence: None)
  Receive Date: 20070824
  Receipt Date: 20070817
  Transmission Date: 20080115
  Serious: Yes (Hospitalization)
  Sender: FDA-Public Use
  Company Number: PHBS2007AT13876

PATIENT
  Sex: Male

DRUGS (2)
  1. VOLTAREN [Suspect]
     Indication: SCIATICA
     Dosage: 50 MG, UNK
  2. VOLTAREN [Suspect]
     Dosage: 75 MG/DAY
     Dates: start: 20070413, end: 20070414

REACTIONS (3)
  - ANAEMIA [None]
  - BIOPSY BONE MARROW ABNORMAL [None]
  - PROSTATIC SPECIFIC ANTIGEN INCREASED [None]
